FAERS Safety Report 9303654 (Version 3)
Quarter: 2013Q3

REPORT INFORMATION
  Report Type: Report from Study
  Country: US (occurrence: US)
  Receive Date: 20130522
  Receipt Date: 20130829
  Transmission Date: 20140515
  Serious: Yes (Other)
  Sender: FDA-Public Use
  Company Number: US-MYLANLABS-2013S1010756

PATIENT
  Age: 17 Year
  Sex: Female

DRUGS (4)
  1. AMNESTEEM CAPSULES [Suspect]
     Dates: start: 20130107, end: 20130427
  2. STELARA [Suspect]
     Indication: PSORIASIS
     Dates: start: 20130405, end: 20130405
  3. STELARA [Suspect]
     Indication: PSORIASIS
     Dates: start: 20130510, end: 20130510
  4. CONTRACEPTIVE [Concomitant]
     Dates: end: 20130510

REACTIONS (1)
  - Exposure during pregnancy [Not Recovered/Not Resolved]
